FAERS Safety Report 6763414-0 (Version None)
Quarter: 2010Q2

REPORT INFORMATION
  Report Type: 
  Country: None (occurrence: None)
  Receive Date: 20100610
  Receipt Date: 20100604
  Transmission Date: 20101027
  Serious: Yes (Hospitalization)
  Sender: FDA-Public Use
  Company Number: JP-BAYER-201012769BYL

PATIENT
  Age: 77 Year
  Sex: Female
  Weight: 41 kg

DRUGS (13)
  1. NEXAVAR [Suspect]
     Indication: HEPATIC NEOPLASM MALIGNANT
     Dosage: UNIT DOSE: 200 MG
     Route: 048
     Dates: start: 20100528, end: 20100603
  2. NEXAVAR [Suspect]
     Dosage: UNIT DOSE: 200 MG
     Route: 048
     Dates: start: 20100604
  3. FESIN [Concomitant]
     Dosage: UNIT DOSE: 40 MG
     Route: 042
     Dates: start: 20100521, end: 20100521
  4. FESIN [Concomitant]
     Dosage: UNIT DOSE: 40 MG
     Route: 042
     Dates: start: 20100524, end: 20100524
  5. FESIN [Concomitant]
     Dosage: UNIT DOSE: 40 MG
     Route: 042
     Dates: start: 20100528, end: 20100528
  6. FERROMIA [Concomitant]
     Dosage: UNIT DOSE: 50 MG
     Route: 048
     Dates: start: 20100529, end: 20100603
  7. ACTARIT [Concomitant]
     Dosage: UNIT DOSE: 100 MG
     Route: 048
     Dates: start: 20010821
  8. URSO 250 [Concomitant]
     Dosage: UNIT DOSE: 100 MG
     Route: 048
  9. WARFARIN [Concomitant]
     Route: 048
  10. ADALAT-CR20 [Concomitant]
     Dosage: UNIT DOSE: 20 MG
     Route: 048
  11. RADEN [Concomitant]
     Dosage: UNIT DOSE: 150 MG
     Route: 048
  12. PRAVASTATIN [Concomitant]
     Dosage: UNIT DOSE: 10 MG
     Route: 048
  13. FOSAMAC 5MG [Concomitant]
     Dosage: UNIT DOSE: 5 MG
     Route: 048

REACTIONS (3)
  - DECREASED APPETITE [None]
  - FATIGUE [None]
  - HEPATIC FUNCTION ABNORMAL [None]
